FAERS Safety Report 5252459-8 (Version None)
Quarter: 2007Q1

REPORT INFORMATION
  Report Type: 
  Country: None (occurrence: None)
  Receive Date: 20070301
  Receipt Date: 20070222
  Transmission Date: 20070707
  Serious: Yes (Other)
  Sender: FDA-Public Use
  Company Number: US-JNJFOC-20070205351

PATIENT
  Sex: Male

DRUGS (15)
  1. INFLIXIMAB [Suspect]
     Indication: RHEUMATOID ARTHRITIS
     Route: 042
  2. AMARYL [Concomitant]
  3. ASPIRIN [Concomitant]
  4. FOLIC ACID [Concomitant]
  5. FOSINOPRIL SODIUM [Concomitant]
  6. FUROSEMIDE [Concomitant]
  7. HYDROCODENE [Concomitant]
  8. METFORMIN HCL [Concomitant]
  9. METHOTREXATE [Concomitant]
  10. PLAVIX [Concomitant]
  11. POTASSIUM ACETATE [Concomitant]
  12. ALLEGRA D 24 HOUR [Concomitant]
  13. ASCORBIC ACID [Concomitant]
  14. TYLENOL [Concomitant]
  15. NEXIUM [Concomitant]

REACTIONS (1)
  - MALIGNANT MELANOMA [None]
